FAERS Safety Report 8819091 (Version 3)
Quarter: 2012Q4

REPORT INFORMATION
  Report Type: 
  Country: US (occurrence: US)
  Receive Date: 20121001
  Receipt Date: 20121011
  Transmission Date: 20130627
  Serious: Yes (Hospitalization)
  Sender: FDA-Public Use
  Company Number: US-JNJFOC-20120406854

PATIENT
  Sex: Female
  Weight: 48.54 kg

DRUGS (4)
  1. LEVAQUIN [Suspect]
     Indication: SINUSITIS
     Route: 048
     Dates: start: 20091125, end: 200912
  2. LEVAQUIN [Suspect]
     Indication: LOWER RESPIRATORY TRACT INFECTION
     Route: 048
     Dates: start: 20091125, end: 200912
  3. LEVAQUIN [Suspect]
     Indication: ASTHMA
     Route: 048
     Dates: start: 20091125, end: 200912
  4. UNKNOWN MEDICATION [Concomitant]
     Route: 065

REACTIONS (5)
  - Pain [Unknown]
  - Nonspecific reaction [Unknown]
  - Laryngitis [Unknown]
  - Musculoskeletal pain [Recovered/Resolved]
  - Burning sensation [Recovered/Resolved]
